FAERS Safety Report 5615328-7 (Version None)
Quarter: 2008Q1

REPORT INFORMATION
  Report Type: 
  Country: None (occurrence: None)
  Receive Date: 20080201
  Receipt Date: 20080119
  Transmission Date: 20080703
  Serious: Yes (Death, Hospitalization, Other)
  Sender: FDA-Public Use
  Company Number: 2008003448

PATIENT
  Age: 67 Year
  Sex: Male

DRUGS (11)
  1. FRAGMIN [Suspect]
     Indication: THROMBOSIS PROPHYLAXIS
     Dosage: 5000 I.U. (5000 I.U., 1 IN 24 HR), SUBCUTANEOUS
     Route: 058
     Dates: start: 20071212, end: 20071222
  2. FRAGMIN [Suspect]
     Indication: THROMBOSIS PROPHYLAXIS
     Dosage: 5000 I.U. (5000 I.U., 1 IN 24 HR), SUBCUTANEOUS
     Route: 058
     Dates: end: 20071226
  3. AZTREONAM             (AZTREONAM) [Concomitant]
  4. MOXIFLOXACIN HCL [Concomitant]
  5. FLUCON                 (FLUOROMETHOLONE) [Concomitant]
  6. SOLU-MEDROL [Concomitant]
  7. METROGYL                  (METRONIDAZOLE) [Concomitant]
  8. AMLODIPINE [Concomitant]
  9. CALPOL                (PARACETAMOL) [Concomitant]
  10. UNICON         (THEOPHYLLINE) [Concomitant]
  11. PANTOPRAZOLE SODIUM [Concomitant]

REACTIONS (6)
  - ACUTE MYOCARDIAL INFARCTION [None]
  - CHRONIC OBSTRUCTIVE PULMONARY DISEASE [None]
  - CONDITION AGGRAVATED [None]
  - HAEMATURIA [None]
  - HYPERTENSION [None]
  - SEPSIS [None]
